FAERS Safety Report 22013695 (Version 1)
Quarter: 2023Q1

REPORT INFORMATION
  Report Type: Spontaneous
  Country: US (occurrence: US)
  Receive Date: 20230221
  Receipt Date: 20230221
  Transmission Date: 20230418
  Serious: Yes (Disabling)
  Sender: FDA-Public Use
  Company Number: US-SA-SAC20230216000333

PATIENT
  Age: 27 Year
  Sex: Male
  Weight: 54 kg

DRUGS (1)
  1. NEXVIAZYME [Suspect]
     Active Substance: AVALGLUCOSIDASE ALFA-NGPT
     Dosage: 20 MG/KG QOW
     Route: 065

REACTIONS (4)
  - Gait disturbance [Unknown]
  - Condition aggravated [Unknown]
  - Pulmonary function test decreased [Not Recovered/Not Resolved]
  - Dyspnoea [Unknown]
